FAERS Safety Report 15479505 (Version 1)
Quarter: 2018Q4

REPORT INFORMATION
  Report Type: Spontaneous
  Country: IT (occurrence: IT)
  Receive Date: 20181009
  Receipt Date: 20181009
  Transmission Date: 20190205
  Serious: Yes (Death)
  Sender: FDA-Public Use
  Company Number: IT-MYLANLABS-2018M1073832

PATIENT
  Age: 55 Year
  Sex: Female

DRUGS (4)
  1. CYTOSINE ARABINOSIDE [Concomitant]
     Active Substance: CYTARABINE
     Indication: CHEMOTHERAPY
     Route: 065
  2. CLOFARABINE. [Suspect]
     Active Substance: CLOFARABINE
     Indication: ACUTE MYELOID LEUKAEMIA
     Route: 065
  3. MITOXANTRONE [Concomitant]
     Active Substance: MITOXANTRONE HYDROCHLORIDE
     Indication: CHEMOTHERAPY
     Route: 065
  4. CYTARABINE. [Concomitant]
     Active Substance: CYTARABINE
     Indication: CHEMOTHERAPY

REACTIONS (2)
  - Drug ineffective [Unknown]
  - Pneumonia [Fatal]
